FAERS Safety Report 8293106-0 (Version None)
Quarter: 2012Q2

REPORT INFORMATION
  Report Type: 
  Country: None (occurrence: None)
  Receive Date: 20120417
  Receipt Date: 20120124
  Transmission Date: 20120825
  Serious: Yes (Hospitalization, Other)
  Sender: FDA-Public Use
  Company Number: US-ASTRAZENECA-2012SE04733

PATIENT
  Age: 62 Year
  Sex: Male
  Weight: 108.9 kg

DRUGS (7)
  1. DIOVAN [Concomitant]
     Indication: CARDIAC DISORDER
  2. THIAMINE HCL [Concomitant]
  3. ASPIRIN [Concomitant]
  4. FOMAX [Concomitant]
  5. LOVAZA [Concomitant]
  6. NEXIUM [Suspect]
     Indication: GASTROOESOPHAGEAL REFLUX DISEASE
     Route: 048
     Dates: start: 20020101
  7. AMLODIPINE [Concomitant]

REACTIONS (1)
  - FEMUR FRACTURE [None]
